FAERS Safety Report 6219529-9 (Version None)
Quarter: 2009Q2

REPORT INFORMATION
  Report Type: 
  Country: None (occurrence: None)
  Receive Date: 20090609
  Receipt Date: 20090528
  Transmission Date: 20091009
  Serious: Yes (Other)
  Sender: FDA-Public Use
  Company Number: US-CUBIST-2009S1000214

PATIENT
  Sex: Male
  Weight: 71 kg

DRUGS (7)
  1. CUBICIN [Suspect]
     Indication: PERITONITIS
     Dates: start: 20090501
  2. CUBICIN [Suspect]
     Indication: ENTEROCOCCAL INFECTION
     Dates: start: 20090501
  3. CUBICIN [Suspect]
     Indication: STAPHYLOCOCCAL INFECTION
     Dates: start: 20090501
  4. CUBICIN [Suspect]
     Dates: start: 20090501
  5. CUBICIN [Suspect]
     Dates: start: 20090501
  6. CUBICIN [Suspect]
     Dates: start: 20090501
  7. SORAFENIB [Concomitant]

REACTIONS (3)
  - BLOOD CREATININE INCREASED [None]
  - HEPATORENAL SYNDROME [None]
  - PERFORMANCE STATUS DECREASED [None]
